FAERS Safety Report 5033545-4 (Version None)
Quarter: 2006Q2

REPORT INFORMATION
  Report Type: 
  Country: None (occurrence: None)
  Receive Date: 20060623
  Receipt Date: 20060613
  Transmission Date: 20061013
  Serious: Yes (Hospitalization)
  Sender: FDA-Public Use
  Company Number: 2006SE03345

PATIENT
  Age: 21138 Day
  Sex: Female

DRUGS (3)
  1. CRESTOR [Suspect]
     Indication: DYSLIPIDAEMIA
     Route: 048
     Dates: start: 20030101, end: 20060101
  2. ZOLOFT [Concomitant]
     Route: 048
     Dates: start: 20030101, end: 20060101
  3. REMERON [Concomitant]
     Route: 048
     Dates: start: 20030101, end: 20060101

REACTIONS (2)
  - ENCEPHALOPATHY [None]
  - MYOPATHY TOXIC [None]
